FAERS Safety Report 21036443 (Version 1)
Quarter: 2022Q3

REPORT INFORMATION
  Report Type: Spontaneous
  Country: SI (occurrence: SI)
  Receive Date: 20220702
  Receipt Date: 20220702
  Transmission Date: 20221026
  Serious: Yes (Other)
  Sender: FDA-Public Use
  Company Number: SI-EPICPHARMA-SI-2022EPCLIT00907

PATIENT
  Age: 36 Year
  Sex: Female

DRUGS (10)
  1. AZITHROMYCIN [Suspect]
     Active Substance: AZITHROMYCIN
     Indication: Corynebacterium infection
     Route: 065
  2. CLINDAMYCIN [Suspect]
     Active Substance: CLINDAMYCIN
     Indication: Corynebacterium infection
     Route: 065
  3. CIPROFLOXACIN [Suspect]
     Active Substance: CIPROFLOXACIN
     Indication: Corynebacterium infection
     Route: 065
  4. VANCOMYCIN [Suspect]
     Active Substance: VANCOMYCIN
     Indication: Corynebacterium infection
     Route: 065
  5. TEICOPLANIN [Suspect]
     Active Substance: TEICOPLANIN
     Indication: Corynebacterium infection
     Route: 065
  6. DEXAMETHASONE [Suspect]
     Active Substance: DEXAMETHASONE
     Indication: Corynebacterium infection
     Route: 048
  7. METHOTREXATE [Suspect]
     Active Substance: METHOTREXATE
     Indication: Corynebacterium infection
     Route: 065
  8. FOLIC ACID [Suspect]
     Active Substance: FOLIC ACID
     Indication: Corynebacterium infection
     Route: 065
  9. PAROXETINE [Concomitant]
     Active Substance: PAROXETINE
     Indication: Panic disorder
     Route: 065
  10. ALPRAZOLAM [Concomitant]
     Active Substance: ALPRAZOLAM
     Indication: Panic disorder
     Route: 065

REACTIONS (2)
  - Cushing^s syndrome [Unknown]
  - Rash [Unknown]
